FAERS Safety Report 6512051-1 (Version None)
Quarter: 2009Q4

REPORT INFORMATION
  Report Type: 
  Country: None (occurrence: None)
  Receive Date: 20091222
  Receipt Date: 20090710
  Transmission Date: 20100525
  Serious: No
  Sender: FDA-Public Use
  Company Number: US-ASTRAZENECA-2009UW13176

PATIENT
  Sex: Female

DRUGS (1)
  1. CRESTOR [Suspect]
     Indication: BLOOD CHOLESTEROL
     Route: 048
     Dates: start: 20090519, end: 20090601

REACTIONS (4)
  - FORMICATION [None]
  - MOBILITY DECREASED [None]
  - MUSCLE SPASMS [None]
  - PAIN [None]
